FAERS Safety Report 20590716 (Version 1)
Quarter: 2022Q1

REPORT INFORMATION
  Report Type: Spontaneous
  Country: US (occurrence: None)
  Receive Date: 20220314
  Receipt Date: 20220314
  Transmission Date: 20220423
  Serious: No
  Sender: FDA-Public Use
  Company Number: 2022A076864

PATIENT
  Age: 78 Year
  Sex: Male

DRUGS (3)
  1. LOKELMA [Suspect]
     Active Substance: SODIUM ZIRCONIUM CYCLOSILICATE
     Indication: Hyperkalaemia
     Route: 048
  2. LOKELMA [Suspect]
     Active Substance: SODIUM ZIRCONIUM CYCLOSILICATE
     Indication: Diarrhoea
     Route: 048
  3. VELTASSA [Concomitant]
     Active Substance: PATIROMER

REACTIONS (2)
  - Constipation [Not Recovered/Not Resolved]
  - Oedema [Not Recovered/Not Resolved]
